FAERS Safety Report 8890514 (Version 3)
Quarter: 2012Q4

REPORT INFORMATION
  Report Type: 
  Country: KW (occurrence: KW)
  Receive Date: 20121106
  Receipt Date: 20121120
  Transmission Date: 20130627
  Serious: Yes (Hospitalization)
  Sender: FDA-Public Use
  Company Number: KW-ABBOTT-12P-091-1003172-00

PATIENT
  Age: 60 Year
  Sex: Male

DRUGS (1)
  1. LUPRON DEPOT [Suspect]
     Indication: PROSTATE CANCER
     Route: 030
     Dates: start: 20120724

REACTIONS (2)
  - Myocardial ischaemia [Unknown]
  - Cardiac disorder [Unknown]
